FAERS Safety Report 22270710 (Version 1)
Quarter: 2023Q2

REPORT INFORMATION
  Report Type: Spontaneous
  Country: US (occurrence: US)
  Receive Date: 20230501
  Receipt Date: 20230501
  Transmission Date: 20230722
  Serious: No
  Sender: FDA-Public Use
  Company Number: US-MYLANLABS-2023M1042818

PATIENT
  Sex: Male
  Weight: 98.43 kg

DRUGS (1)
  1. WIXELA INHUB [Suspect]
     Active Substance: FLUTICASONE PROPIONATE\SALMETEROL XINAFOATE
     Indication: Dyspnoea
     Dosage: UNK UNK, BID (TWICE A DAY)
     Route: 055

REACTIONS (2)
  - Device defective [Unknown]
  - Incorrect dose administered [Unknown]
